FAERS Safety Report 6037447-6 (Version None)
Quarter: 2009Q1

REPORT INFORMATION
  Report Type: 
  Country: None (occurrence: None)
  Receive Date: 20090114
  Receipt Date: 20081230
  Transmission Date: 20090719
  Serious: Yes (Life-Threatening, Hospitalization, Other)
  Sender: FDA-Public Use
  Company Number: NL-WYE-G02865408

PATIENT
  Sex: Male

DRUGS (1)
  1. TEMSIROLIMUS [Suspect]
     Indication: METASTATIC RENAL CELL CARCINOMA
     Dosage: RECEIVED APPR 14 DOSES
     Dates: end: 20081201

REACTIONS (5)
  - HAEMODYNAMIC INSTABILITY [None]
  - RECTAL HAEMORRHAGE [None]
  - RENAL FAILURE ACUTE [None]
  - RENAL TUBULAR NECROSIS [None]
  - SMALL INTESTINAL HAEMORRHAGE [None]
